FAERS Safety Report 17692181 (Version 2)
Quarter: 2020Q2

REPORT INFORMATION
  Report Type: Spontaneous
  Country: US (occurrence: US)
  Receive Date: 20200422
  Receipt Date: 20200611
  Transmission Date: 20200714
  Serious: No
  Sender: FDA-Public Use
  Company Number: US-PFIZER INC-2020017024

PATIENT
  Age: 74 Year
  Sex: Female
  Weight: 87.09 kg

DRUGS (5)
  1. VITAMIN D3 [Concomitant]
     Active Substance: CHOLECALCIFEROL
     Dosage: 4000 IU, 1X/DAY (2 2000 IU TABLETS BY MOUTH ONCE A DAY)
     Route: 048
     Dates: start: 201807
  2. AMLODIPINE [Concomitant]
     Active Substance: AMLODIPINE BESYLATE
     Indication: HYPERTENSION
     Dosage: 10 MG, 1X/DAY
     Route: 048
  3. SUTENT [Suspect]
     Active Substance: SUNITINIB MALATE
     Dosage: 37.5 MG, CYCLIC (37.5 MG CAPSULE BY MOUTH ONCE A DAY FOR 28 DAYS, THEN OFF FOR 14 DAYS)
     Route: 048
     Dates: start: 202001
  4. PANTOPRAZOLE [Concomitant]
     Active Substance: PANTOPRAZOLE
     Indication: GASTROOESOPHAGEAL REFLUX DISEASE
     Dosage: 40 MG, 1X/DAY
     Route: 048
  5. SUTENT [Suspect]
     Active Substance: SUNITINIB MALATE
     Indication: GASTROINTESTINAL STROMAL TUMOUR
     Dosage: 37.5 MG, CYCLIC [1 CAP PO DAILY FOR 28 DAYS, 14 DAYS REST THEN REPEAT]
     Route: 048

REACTIONS (5)
  - Toothache [Not Recovered/Not Resolved]
  - Diarrhoea [Unknown]
  - Bradyphrenia [Unknown]
  - Pain in extremity [Not Recovered/Not Resolved]
  - Neoplasm progression [Unknown]

NARRATIVE: CASE EVENT DATE: 20200414
